FAERS Safety Report 6920340-1 (Version None)
Quarter: 2010Q3

REPORT INFORMATION
  Report Type: 
  Country: None (occurrence: None)
  Receive Date: 20100730
  Receipt Date: 20090721
  Transmission Date: 20110219
  Serious: Yes (Hospitalization, Other)
  Sender: FDA-Public Use
  Company Number: US-000578

PATIENT
  Age: 11 Year
  Sex: Male

DRUGS (2)
  1. SOMATROPIN [Suspect]
     Indication: BODY HEIGHT BELOW NORMAL
  2. METFORMIN [Concomitant]

REACTIONS (1)
  - PITUITARY-DEPENDENT CUSHING'S SYNDROME [None]
